FAERS Safety Report 18877518 (Version 3)
Quarter: 2021Q2

REPORT INFORMATION
  Report Type: Spontaneous
  Country: US (occurrence: US)
  Receive Date: 20210211
  Receipt Date: 20210409
  Transmission Date: 20210717
  Serious: No
  Sender: FDA-Public Use
  Company Number: US-SA-2021SA042723

PATIENT
  Sex: Male

DRUGS (1)
  1. DUPIXENT [Suspect]
     Active Substance: DUPILUMAB
     Indication: DERMATITIS ATOPIC
     Dosage: 200 MG, QOW
     Route: 058

REACTIONS (6)
  - Sinus disorder [Unknown]
  - Blepharitis [Unknown]
  - Corneal disorder [Unknown]
  - Eczema [Unknown]
  - Eye pruritus [Unknown]
  - Cough [Unknown]
